FAERS Safety Report 5215052-9 (Version None)
Quarter: 2007Q1

REPORT INFORMATION
  Report Type: 
  Country: None (occurrence: None)
  Receive Date: 20070122
  Receipt Date: 20070112
  Transmission Date: 20070707
  Serious: Yes (Life-Threatening, Disabling)
  Sender: FDA-Public Use
  Company Number: US-MERCK-0612USA00295

PATIENT
  Age: 1 Month
  Sex: Female
  Weight: 2 kg

DRUGS (9)
  1. CANCIDAS [Suspect]
     Indication: CANDIDIASIS
     Route: 042
     Dates: start: 20061125, end: 20061228
  2. AMINO ACIDS (UNSPECIFIED) AND CARBOHYDRATES (UNSPECIFIED) AND ELECTROL [Concomitant]
     Route: 065
  3. HYDROCORTISONE [Concomitant]
     Route: 042
  4. BUMETANIDE [Concomitant]
     Route: 042
  5. GENTAMICIN [Concomitant]
     Route: 042
  6. PHENOBARBITAL [Concomitant]
     Route: 048
  7. FLUCONAZOLE [Concomitant]
     Route: 042
  8. FENTANYL [Concomitant]
     Route: 041
  9. DOPAMINE HYDROCHLORIDE [Concomitant]
     Route: 041

REACTIONS (4)
  - BLOOD CULTURE POSITIVE [None]
  - DRUG INEFFECTIVE [None]
  - MEDICATION ERROR [None]
  - PRESCRIBED OVERDOSE [None]
